FAERS Safety Report 8112886-8 (Version None)
Quarter: 2012Q1

REPORT INFORMATION
  Report Type: 
  Country: None (occurrence: None)
  Receive Date: 20120203
  Receipt Date: 20120126
  Transmission Date: 20120608
  Serious: Yes (Hospitalization, Other)
  Sender: FDA-Public Use
  Company Number: US-MUTUAL PHARMACEUTICAL COMPANY, INC.-CLCY20120003

PATIENT
  Sex: Female
  Weight: 65.376 kg

DRUGS (6)
  1. SYNTHROID [Concomitant]
     Indication: HYPOTHYROIDISM
     Route: 048
  2. METOPROLOL [Concomitant]
     Indication: CARDIOMYOPATHY
     Route: 048
  3. CLARITHROMYCIN [Suspect]
     Indication: SKIN ULCER
     Route: 048
     Dates: start: 20111206, end: 20111214
  4. COLCRYS [Suspect]
     Indication: OEDEMA PERIPHERAL
     Route: 048
     Dates: start: 20110801, end: 20110901
  5. INDOMETHACIN [Suspect]
     Indication: OEDEMA PERIPHERAL
     Route: 048
     Dates: start: 20110801, end: 20110901
  6. LASIX [Concomitant]
     Indication: PRODUCT USED FOR UNKNOWN INDICATION
     Route: 065

REACTIONS (15)
  - AMMONIA DECREASED [None]
  - HYDROCEPHALUS [None]
  - OFF LABEL USE [None]
  - PSYCHOTIC DISORDER [None]
  - URINARY TRACT INFECTION [None]
  - RESPIRATORY FAILURE [None]
  - DELIRIUM [None]
  - CONVULSION [None]
  - MYOCARDIAL INFARCTION [None]
  - AMNESIA [None]
  - WHITE BLOOD CELL COUNT INCREASED [None]
  - COMPLEX PARTIAL SEIZURES [None]
  - CEREBRAL CYST [None]
  - MENTAL STATUS CHANGES [None]
  - AGITATION [None]
